FAERS Safety Report 8004915-7 (Version None)
Quarter: 2011Q4

REPORT INFORMATION
  Report Type: 
  Country: None (occurrence: None)
  Receive Date: 20111219
  Receipt Date: 20111212
  Transmission Date: 20120403
  Serious: Yes (Hospitalization)
  Sender: FDA-Public Use
  Company Number: 2011SP053594

PATIENT
  Age: 84 Year
  Sex: Female

DRUGS (12)
  1. POTASSIUM CHLORIDE [Concomitant]
  2. NITROGLYCERIN [Concomitant]
  3. CORDARONE [Concomitant]
  4. MIRTAZAPINE [Suspect]
     Indication: DEPRESSION
     Dosage: PO
     Route: 048
     Dates: start: 20111017
  5. NEO-MERCAZOLE TAB [Concomitant]
  6. RAMIPRIL [Concomitant]
  7. ACETAMINOPHEN AND TRAMADOL HCL [Concomitant]
  8. MOVIPREP [Concomitant]
  9. PREVISCAN [Concomitant]
  10. CALCITRIOL [Suspect]
     Indication: PRODUCT USED FOR UNKNOWN INDICATION
     Dosage: ONCE, PO
     Route: 048
     Dates: start: 20111024, end: 20111024
  11. LASIX [Concomitant]
  12. BISOPROLOL FUMARATE [Concomitant]

REACTIONS (2)
  - PRURITUS [None]
  - ANGIOEDEMA [None]
